FAERS Safety Report 4786200-X (Version None)
Quarter: 2005Q4

REPORT INFORMATION
  Report Type: 
  Country: None (occurrence: None)
  Receive Date: 20051003
  Receipt Date: 20051003
  Transmission Date: 20060501
  Serious: Yes (Hospitalization, Other)
  Sender: FDA-Public Use
  Company Number: None

PATIENT
  Sex: Male
  Weight: 96.8 kg

DRUGS (4)
  1. PACLITAXEL [Suspect]
     Indication: NON-SMALL CELL LUNG CANCER
     Dosage: SEE IMAGE
     Dates: start: 20050714, end: 20050825
  2. PACLITAXEL [Suspect]
     Indication: NON-SMALL CELL LUNG CANCER
     Dosage: SEE IMAGE
     Dates: start: 20050825
  3. CARBOPLATIN [Suspect]
     Dosage: SEE IMAGE
     Dates: start: 20050714, end: 20050825
  4. CARBOPLATIN [Suspect]
     Dosage: SEE IMAGE
     Dates: start: 20050825

REACTIONS (4)
  - ASTHENIA [None]
  - BLOOD CULTURE POSITIVE [None]
  - CATHETER REMOVAL [None]
  - STAPHYLOCOCCAL INFECTION [None]
